FAERS Safety Report 10084444 (Version 1)
Quarter: 2014Q2

REPORT INFORMATION
  Report Type: Spontaneous
  Country: IT (occurrence: FR)
  Receive Date: 20140417
  Receipt Date: 20140417
  Transmission Date: 20141212
  Serious: Yes (Life-Threatening)
  Sender: FDA-Public Use
  Company Number: FR-FRI-1000066459

PATIENT
  Age: 89 Year
  Sex: Female

DRUGS (7)
  1. NEBIVOLOL [Suspect]
     Indication: CARDIAC FAILURE
     Dosage: 5 MG
     Route: 048
     Dates: end: 20140303
  2. CORDARONE [Suspect]
     Indication: ATRIAL FIBRILLATION
     Dosage: 200 MG
     Route: 048
     Dates: start: 20140225, end: 20140303
  3. LASILIX [Suspect]
     Indication: CARDIAC FAILURE
     Dosage: 500 MG
     Route: 048
     Dates: start: 201401
  4. TAHOR [Concomitant]
     Dosage: 10 MG
     Route: 048
  5. AMLOR [Concomitant]
     Indication: HYPERTENSION
     Dosage: 5 MG
     Route: 048
  6. PRADAXA [Concomitant]
     Indication: ATRIAL FIBRILLATION
     Dosage: 110 MG
     Route: 048
     Dates: start: 201312, end: 20140306
  7. LEVOTHYROX [Concomitant]
     Indication: HYPOTHYROIDISM
     Dosage: 50-75 MCG
     Route: 048

REACTIONS (5)
  - Electrocardiogram QT prolonged [Recovered/Resolved]
  - Hypokalaemia [Recovered/Resolved]
  - Fall [Recovered/Resolved]
  - Loss of consciousness [Recovered/Resolved]
  - Cardiac failure [Recovered/Resolved]
